FAERS Safety Report 17024299 (Version 2)
Quarter: 2020Q4

REPORT INFORMATION
  Report Type: Other
  Country: US (occurrence: US)
  Receive Date: 20191113
  Receipt Date: 20201104
  Transmission Date: 20210113
  Serious: Yes (Other)
  Sender: FDA-Public Use
  Company Number: US-ROCHE-2460594

PATIENT
  Age: 65 Year
  Sex: Male

DRUGS (2)
  1. OCREVUS [Suspect]
     Active Substance: OCRELIZUMAB
     Indication: RELAPSING-REMITTING MULTIPLE SCLEROSIS
     Dosage: (PRESCRIBED 300 MG ON DAY 1 AND DAY 15 AND 600 MG ONCE IN 6 MONTHS)
     Route: 042
     Dates: start: 20180925
  2. OCREVUS [Suspect]
     Active Substance: OCRELIZUMAB
     Indication: MULTIPLE SCLEROSIS

REACTIONS (6)
  - Parkinson^s disease [Not Recovered/Not Resolved]
  - Hallucination [Recovered/Resolved]
  - Product use issue [Unknown]
  - Herpes zoster [Unknown]
  - Off label use [Unknown]
  - Amnesia [Recovered/Resolved]

NARRATIVE: CASE EVENT DATE: 20191007
